FAERS Safety Report 11783197 (Version 1)
Quarter: 2015Q4

REPORT INFORMATION
  Report Type: Report from Study
  Country: DE (occurrence: DE)
  Receive Date: 20151127
  Receipt Date: 20151127
  Transmission Date: 20160305
  Serious: Yes (Life-Threatening)
  Sender: FDA-Public Use
  Company Number: PHHO2012DE019922

PATIENT
  Age: 45 Year
  Sex: Male
  Weight: 65.1 kg

DRUGS (6)
  1. SULTAMICILLIN [Concomitant]
     Active Substance: SULTAMICILLIN
     Indication: PRODUCT USED FOR UNKNOWN INDICATION
     Dosage: UNK
     Route: 065
  2. FILGRASTIM [Concomitant]
     Active Substance: FILGRASTIM
     Indication: PRODUCT USED FOR UNKNOWN INDICATION
     Dosage: UNK
     Route: 065
  3. OFATUMUMAB [Suspect]
     Active Substance: OFATUMUMAB
     Indication: NON-HODGKIN^S LYMPHOMA
     Dosage: 1280 MG, CYCLIC
     Route: 042
     Dates: start: 20120703, end: 20120911
  4. BENDAMUSTINE [Suspect]
     Active Substance: BENDAMUSTINE
     Indication: NON-HODGKIN^S LYMPHOMA
     Dosage: 90 MG/M2 (6000), CYCLIC
     Route: 042
     Dates: start: 20120703, end: 20121119
  5. OFATUMUMAB [Suspect]
     Active Substance: OFATUMUMAB
     Dosage: 520 MG, CYCLIC
     Route: 042
     Dates: start: 20121022, end: 20121120
  6. CIPROFLOXACIN. [Concomitant]
     Active Substance: CIPROFLOXACIN
     Indication: PRODUCT USED FOR UNKNOWN INDICATION
     Dosage: UNK
     Route: 065

REACTIONS (1)
  - Neutrophil count decreased [Recovered/Resolved]

NARRATIVE: CASE EVENT DATE: 20120903
